FAERS Safety Report 4641887-7 (Version None)
Quarter: 2005Q2

REPORT INFORMATION
  Report Type: 
  Country: None (occurrence: None)
  Receive Date: 20050421
  Receipt Date: 20050414
  Transmission Date: 20051028
  Serious: Yes (Hospitalization)
  Sender: FDA-Public Use
  Company Number: DE-MERCK-0504DEU00107

PATIENT
  Sex: Male

DRUGS (2)
  1. VYTORIN [Suspect]
     Indication: HYPERCHOLESTEROLAEMIA
     Route: 048
  2. VYTORIN [Suspect]
     Route: 048

REACTIONS (3)
  - ANGINA PECTORIS [None]
  - BLOOD CREATINE PHOSPHOKINASE INCREASED [None]
  - FEELING ABNORMAL [None]
